FAERS Safety Report 9212939 (Version 2)
Quarter: 2013Q3

REPORT INFORMATION
  Report Type: Spontaneous
  Country: IT (occurrence: IT)
  Receive Date: 20130405
  Receipt Date: 20130924
  Transmission Date: 20140515
  Serious: Yes (Other)
  Sender: FDA-Public Use
  Company Number: IT-JNJFOC-20130318672

PATIENT
  Age: 44 Year
  Sex: Female
  Weight: 58 kg

DRUGS (3)
  1. REMICADE [Suspect]
     Indication: BEHCET^S SYNDROME
     Dosage: CYCLIC
     Route: 042
     Dates: start: 20110526, end: 20130131
  2. CYCLOSPORIN [Suspect]
     Indication: BEHCET^S SYNDROME
     Route: 048
     Dates: start: 20090501, end: 20130225
  3. MESALAZINE [Concomitant]
     Route: 065
     Dates: start: 20090501, end: 20130225

REACTIONS (2)
  - Kaposi^s varicelliform eruption [Unknown]
  - Off label use [Unknown]
